FAERS Safety Report 12416483 (Version 1)
Quarter: 2016Q2

REPORT INFORMATION
  Report Type: Spontaneous
  Country: US (occurrence: US)
  Receive Date: 20160530
  Receipt Date: 20160530
  Transmission Date: 20160815
  Serious: No
  Sender: FDA-Public Use
  Company Number: US-PFIZER INC-2016258004

PATIENT
  Age: 40 Year
  Sex: Female
  Weight: 58 kg

DRUGS (3)
  1. IBRANCE [Suspect]
     Active Substance: PALBOCICLIB
     Indication: BREAST CANCER METASTATIC
     Dosage: 125 MG, 1X/DAY
     Route: 048
     Dates: start: 20160502
  2. XGEVA [Concomitant]
     Active Substance: DENOSUMAB
     Dosage: INJECTION IN EVERY 12 WEEKS
  3. LETROZOLE. [Concomitant]
     Active Substance: LETROZOLE
     Dosage: MAYBE IT WAS 5 MG OR 2.5 MG, 1X/DAY

REACTIONS (3)
  - Condition aggravated [Unknown]
  - Burning sensation [Recovered/Resolved]
  - Neuropathy peripheral [Unknown]
